FAERS Safety Report 8248695-9 (Version None)
Quarter: 2012Q1

REPORT INFORMATION
  Report Type: 
  Country: None (occurrence: None)
  Receive Date: 20120331
  Receipt Date: 20120323
  Transmission Date: 20120608
  Serious: Yes (Other)
  Sender: FDA-Public Use
  Company Number: PHHY2011BR109983

PATIENT
  Age: 55 Year
  Sex: Male
  Weight: 74 kg

DRUGS (2)
  1. DIOVAN [Suspect]
     Indication: HYPERTENSION
     Dosage: ONE TABLET (40 MG), DAILY
  2. DIOVAN [Suspect]
     Dosage: 80 MG, UNK

REACTIONS (10)
  - ARTERIOSCLEROSIS [None]
  - GASTRIC DISORDER [None]
  - INCORRECT DOSE ADMINISTERED [None]
  - INFARCTION [None]
  - DYSPNOEA [None]
  - DYSPHAGIA [None]
  - MALAISE [None]
  - BLOOD PRESSURE DECREASED [None]
  - HYPOTENSION [None]
  - OVERWEIGHT [None]
